FAERS Safety Report 9344880 (Version 1)
Quarter: 2013Q2

REPORT INFORMATION
  Report Type: Report from Study
  Country: FR (occurrence: FR)
  Receive Date: 20130612
  Receipt Date: 20130612
  Transmission Date: 20140414
  Serious: Yes (Hospitalization)
  Sender: FDA-Public Use
  Company Number: FR-GLAXOSMITHKLINE-Z0017763A

PATIENT
  Age: 61 Year
  Sex: Female
  Weight: 54 kg

DRUGS (4)
  1. TRAMETINIB [Suspect]
     Indication: MALIGNANT MELANOMA
     Dosage: 2MG PER DAY
     Route: 048
     Dates: start: 20121010
  2. DABRAFENIB [Suspect]
     Indication: MALIGNANT MELANOMA
     Dosage: 150MG TWICE PER DAY
     Route: 048
     Dates: start: 20121010
  3. CORTANCYL [Concomitant]
     Indication: ARTHRALGIA
     Dosage: 5MG PER DAY
     Route: 048
     Dates: start: 20121122, end: 20121126
  4. CORTANCYL [Concomitant]
     Indication: ARTHRALGIA
     Dosage: 10MG PER DAY
     Route: 048
     Dates: start: 20121127

REACTIONS (1)
  - Sepsis [Recovered/Resolved]
